FAERS Safety Report 8770915 (Version 1)
Quarter: 2012Q4

REPORT INFORMATION
  Report Type: 
  Country: US (occurrence: US)
  Receive Date: 20120906
  Receipt Date: 20120906
  Transmission Date: 20130627
  Serious: Yes (Hospitalization, Other)
  Sender: FDA-Public Use
  Company Number: US-BAYER-2012-091192

PATIENT
  Age: 24 Year
  Sex: Female

DRUGS (21)
  1. YAZ [Suspect]
  2. EFFEXOR [Concomitant]
     Dosage: 37.5 mg, UNK
  3. RISPERDAL [Concomitant]
     Dosage: 2 mg, UNK
  4. KLONOPIN [Concomitant]
     Dosage: 1 mg, UNK
  5. CLONIDINE [Concomitant]
     Dosage: 0.1 mg, UNK
  6. AMBIEN [Concomitant]
     Dosage: 5 mg, UNK
  7. PERCOCET [Concomitant]
     Dosage: UNK UNK, PRN
     Route: 048
  8. CLONAZEPAM [Concomitant]
     Dosage: 0.5 mg, UNK
     Dates: start: 20080408
  9. CLONAZEPAM [Concomitant]
     Dosage: 0.5 mg, UNK
     Dates: start: 20080620
  10. EFFEXOR XR [Concomitant]
     Dosage: 75 mg, UNK
     Dates: start: 20080428
  11. EFFEXOR XR [Concomitant]
     Dosage: 75 mg, UNK
     Dates: start: 20080528
  12. EFFEXOR XR [Concomitant]
     Dosage: 150 mg, UNK
     Dates: start: 20080428, end: 20080620
  13. ZOLPIDEM [Concomitant]
     Dosage: 5 mg, UNK
     Dates: start: 20080428
  14. ZOLPIDEM [Concomitant]
     Dosage: 5 mg, UNK
     Dates: start: 20080528
  15. WELLBUTRIN XL [Concomitant]
     Dosage: 150 mg, UNK
     Dates: start: 20080530
  16. OXYCODONE/APAP [Concomitant]
     Dosage: 5-325 mg
     Dates: start: 20080711
  17. OXYCODONE/APAP [Concomitant]
     Dosage: 5-325 mg UNK
     Dates: start: 20080716
  18. OXYCODONE/APAP [Concomitant]
     Dosage: 5-325 mg UNK
     Dates: start: 20080723
  19. HYDROCODONE W/APAP [Concomitant]
     Dosage: 5-500
     Dates: start: 20080713
  20. CEPHALEXIN [Concomitant]
     Dosage: 500 mg, UNK
     Dates: start: 20080716
  21. MORPHINE [Concomitant]
     Indication: ABDOMINAL PAIN LOWER

REACTIONS (2)
  - Pulmonary embolism [None]
  - Cholecystitis chronic [None]
